FAERS Safety Report 8972455 (Version 1)
Quarter: 2012Q4

REPORT INFORMATION
  Report Type: Spontaneous
  Country: GB (occurrence: None)
  Receive Date: 20121207
  Receipt Date: 20121207
  Transmission Date: 20130627
  Serious: Yes (Other)
  Sender: FDA-Public Use
  Company Number: 2012-01734

PATIENT
  Sex: Male

DRUGS (2)
  1. SIMVASTATIN [Suspect]
     Indication: DOUBLE VESSEL BYPASS GRAFT
  2. DILTIAZEM [Suspect]
     Indication: DOUBLE VESSEL BYPASS GRAFT
     Dosage: 180 mg (60 mg 3 in 1 D), Unknown

REACTIONS (3)
  - Oedema peripheral [None]
  - Bladder dysfunction [None]
  - Medication error [None]
